FAERS Safety Report 25708117 (Version 2)
Quarter: 2025Q3

REPORT INFORMATION
  Report Type: Report from Study
  Country: CA (occurrence: CA)
  Receive Date: 20250820
  Receipt Date: 20250904
  Transmission Date: 20251020
  Serious: Yes (Other)
  Sender: ABBVIE
  Company Number: CA-ABBVIE-6420584

PATIENT
  Sex: Male

DRUGS (2)
  1. RINVOQ [Suspect]
     Active Substance: UPADACITINIB
     Indication: Crohn^s disease
     Route: 048
     Dates: start: 20210625
  2. RINVOQ [Suspect]
     Active Substance: UPADACITINIB
     Indication: Crohn^s disease
     Route: 048
     Dates: start: 20231211, end: 20250817

REACTIONS (7)
  - Anal cancer [Unknown]
  - Colon cancer [Unknown]
  - Rectal cancer [Unknown]
  - Appendix cancer [Unknown]
  - Neoplasm malignant [Unknown]
  - Gallbladder cancer [Unknown]
  - Hepatic cancer [Unknown]
